FAERS Safety Report 15327179 (Version 1)
Quarter: 2018Q3

REPORT INFORMATION
  Report Type: Spontaneous
  Country: US (occurrence: US)
  Receive Date: 20180828
  Receipt Date: 20180828
  Transmission Date: 20181010
  Serious: Yes (Hospitalization, Other)
  Sender: FDA-Public Use
  Company Number: US-GLAXOSMITHKLINE-US2018152726

PATIENT
  Age: 93 Year
  Sex: Male

DRUGS (1)
  1. ANORO ELLIPTA [Suspect]
     Active Substance: UMECLIDINIUM BROMIDE\VILANTEROL TRIFENATATE
     Indication: PRODUCT USED FOR UNKNOWN INDICATION
     Dosage: UNK UNK, Z
     Dates: start: 2016

REACTIONS (8)
  - Pulmonary thrombosis [Unknown]
  - Asthenia [Recovering/Resolving]
  - Hip arthroplasty [Unknown]
  - Hyperhidrosis [Recovered/Resolved]
  - Nervousness [Recovered/Resolved]
  - Chest discomfort [Recovered/Resolved]
  - Cough [Recovered/Resolved]
  - Prescribed underdose [Unknown]

NARRATIVE: CASE EVENT DATE: 201801
